FAERS Safety Report 4397247-X (Version None)
Quarter: 2004Q3

REPORT INFORMATION
  Report Type: 
  Country: None (occurrence: None)
  Receive Date: 20040709
  Receipt Date: 20040628
  Transmission Date: 20050211
  Serious: Yes (Death, Hospitalization)
  Sender: FDA-Public Use
  Company Number: 03P-167-0246073-00

PATIENT
  Age: 75 Year
  Sex: Female

DRUGS (7)
  1. HUMIRA [Suspect]
     Indication: RHEUMATOID ARTHRITIS
     Dosage: 40 MG, 1 IN 2 WK, SUBCUTANEOUS
     Route: 058
     Dates: start: 20031022, end: 20031229
  2. ASPIRIN [Concomitant]
  3. SULFASALAZINE [Concomitant]
  4. SODIUM AUROTHIOMALATE [Concomitant]
  5. CELECOXIB [Concomitant]
  6. DIHYDROCODEINE [Concomitant]
  7. ACETAMINOPHEN [Concomitant]

REACTIONS (8)
  - ARTHRITIS BACTERIAL [None]
  - ATRIAL FIBRILLATION [None]
  - BLOOD BLISTER [None]
  - BRONCHOPNEUMONIA [None]
  - CARDIAC FAILURE [None]
  - GENERAL PHYSICAL HEALTH DETERIORATION [None]
  - LOBAR PNEUMONIA [None]
  - ULCER [None]
